FAERS Safety Report 6342050-4 (Version None)
Quarter: 2009Q3

REPORT INFORMATION
  Report Type: 
  Country: None (occurrence: None)
  Receive Date: 20090903
  Receipt Date: 20090824
  Transmission Date: 20100115
  Serious: Yes (Hospitalization, Other)
  Sender: FDA-Public Use
  Company Number: 2009SP022499

PATIENT
  Age: 54 Year
  Sex: Female

DRUGS (3)
  1. PEG-INTRON [Suspect]
     Indication: HEPATITIS C
     Dosage: 100 MCG; QW
     Dates: start: 20070501
  2. RIBAVIRIN [Suspect]
     Indication: HEPATITIS C
     Dosage: 1000 MG; QD; 1 DF
     Dates: start: 20070501
  3. LEVOTHYROXINE SODIUM [Concomitant]

REACTIONS (6)
  - CHOREA [None]
  - CONDITION AGGRAVATED [None]
  - FACIAL PALSY [None]
  - NEUROTOXICITY [None]
  - OVERDOSE [None]
  - PAIN [None]
